FAERS Safety Report 4525957-X (Version None)
Quarter: 2004Q4

REPORT INFORMATION
  Report Type: 
  Country: None (occurrence: None)
  Receive Date: 20041213
  Receipt Date: 20041213
  Transmission Date: 20050328
  Serious: Yes (Death)
  Sender: FDA-Public Use
  Company Number: None

PATIENT
  Age: 72 Year
  Sex: Female
  Weight: 74.8435 kg

DRUGS (10)
  1. CLODRONATE   800 MG [Suspect]
     Indication: BREAST CANCER
     Dosage: 1600  QD ORAL
     Route: 048
     Dates: start: 20030210, end: 20041203
  2. PLACEBO [Suspect]
  3. CLONIDINE HCL [Concomitant]
  4. ATENOLOL [Concomitant]
  5. ARICEPT [Concomitant]
  6. HYDROCHLOROTHIAZIDE [Concomitant]
  7. LEXAPRO [Concomitant]
  8. ARIMIDEX [Concomitant]
  9. MULTI-VITAMIN [Concomitant]
  10. ASPIRIN [Concomitant]

REACTIONS (4)
  - AORTIC DISSECTION [None]
  - BRADYCARDIA [None]
  - CARDIO-RESPIRATORY ARREST [None]
  - HYPOTENSION [None]
